FAERS Safety Report 6339659-0 (Version None)
Quarter: 2009Q3

REPORT INFORMATION
  Report Type: 
  Country: None (occurrence: None)
  Receive Date: 20090903
  Receipt Date: 20090827
  Transmission Date: 20100115
  Serious: Yes (Life-Threatening)
  Sender: FDA-Public Use
  Company Number: HU-AVENTIS-200916745GDDC

PATIENT
  Age: 67 Year
  Sex: Female

DRUGS (15)
  1. LANTUS [Suspect]
     Indication: DIABETES MELLITUS
     Route: 058
     Dates: start: 20080708
  2. ORAL ANTIDIABETICS [Concomitant]
     Indication: DIABETES MELLITUS
  3. MERCKFORMIN [Concomitant]
     Indication: DIABETES MELLITUS
     Route: 048
  4. GLIPREX [Concomitant]
     Indication: DIABETES MELLITUS
     Route: 048
  5. CORVATON - SLOW RELEASE [Concomitant]
     Dosage: DOSE QUANTITY: 2
     Route: 048
  6. NEBILET [Concomitant]
     Route: 048
  7. ASPIRIN [Concomitant]
     Route: 048
  8. TRITACE [Concomitant]
     Indication: HYPERTENSION
     Dosage: DOSE: 0.5-0-1
     Route: 048
  9. SIMVASTATIN [Concomitant]
     Route: 048
  10. CHINOTAL [Concomitant]
     Dosage: DOSE QUANTITY: 3
     Route: 048
  11. CAVINTON [Concomitant]
     Dosage: DOSE QUANTITY: 3
     Route: 048
  12. FRONTIN [Concomitant]
     Indication: DEPRESSION
     Dosage: DOSE QUANTITY: .75
     Route: 048
  13. REFLUXON [Concomitant]
     Route: 048
  14. LYRICA [Concomitant]
     Indication: POLYNEUROPATHY
     Route: 047
  15. BENFOGAMMA [Concomitant]
     Dosage: DOSE QUANTITY: 3
     Route: 048

REACTIONS (3)
  - HEPATIC NEOPLASM [None]
  - NEOPLASM [None]
  - PANCREATIC CARCINOMA [None]
